FAERS Safety Report 8504890-2 (Version None)
Quarter: 2012Q3

REPORT INFORMATION
  Report Type: 
  Country: None (occurrence: None)
  Receive Date: 20120712
  Receipt Date: 20120709
  Transmission Date: 20120928
  Serious: Yes (Life-Threatening, Hospitalization)
  Sender: FDA-Public Use
  Company Number: PHHO2012DE008915

PATIENT
  Age: 41 Year
  Sex: Female
  Weight: 51 kg

DRUGS (5)
  1. AZATHIOPRINE [Suspect]
     Indication: IMMUNOSUPPRESSION
     Dosage: 50 MG, QD
     Dates: start: 20110201, end: 20120416
  2. PREDNISOLONE [Suspect]
     Dosage: 5 MG, QD
     Route: 049
     Dates: start: 20111118
  3. MYCOPHENOLIC ACID [Suspect]
     Indication: PANCREAS TRANSPLANT
     Dosage: UNK
     Dates: end: 20120117
  4. PREDNISOLONE [Suspect]
     Indication: IMMUNOSUPPRESSION
     Dosage: 15 MG, UNK
     Route: 048
     Dates: start: 20111117
  5. PROGRAF [Suspect]
     Indication: IMMUNOSUPPRESSION
     Dosage: 3.5 MG, BID
     Route: 048
     Dates: start: 20111117

REACTIONS (5)
  - DIARRHOEA [None]
  - HYPERTHYROIDISM [None]
  - URINARY TRACT INFECTION [None]
  - PNEUMONIA KLEBSIELLA [None]
  - UROSEPSIS [None]
